FAERS Safety Report 24803582 (Version 2)
Quarter: 2025Q1

REPORT INFORMATION
  Report Type: Report from Study
  Country: BR (occurrence: BR)
  Receive Date: 20250103
  Receipt Date: 20250108
  Transmission Date: 20250408
  Serious: Yes (Hospitalization, Other)
  Sender: CELLTRION
  Company Number: BR-CELLTRION INC.-2024BR033261

PATIENT

DRUGS (9)
  1. INFLIXIMAB-DYYB [Suspect]
     Active Substance: INFLIXIMAB-DYYB
     Indication: Colitis ulcerative
     Route: 042
     Dates: start: 20230728, end: 20240726
  2. INFLIXIMAB-DYYB [Suspect]
     Active Substance: INFLIXIMAB-DYYB
     Dosage: 3 AMPOULES (250MG) EVERY 4 WEEKS (WEEK 0)
     Route: 042
  3. INFLIXIMAB-DYYB [Suspect]
     Active Substance: INFLIXIMAB-DYYB
     Dates: start: 20250102
  4. VEDOLIZUMAB [Suspect]
     Active Substance: VEDOLIZUMAB
     Indication: Product used for unknown indication
     Dosage: 1 AMPOULE OF 300MG EVERY 2 WEEKS (3 LOADING DOSES AND ONLY ONE MAINTENANCE DOSE)
     Dates: start: 20240727
  5. CIPROFLOXACIN [Concomitant]
     Active Substance: CIPROFLOXACIN
  6. DIPYRONE [Concomitant]
     Active Substance: DIPYRONE
     Indication: Pain
  7. METRONIDAZOLE [Concomitant]
     Active Substance: METRONIDAZOLE
  8. OMEPRAZOLE [Concomitant]
     Active Substance: OMEPRAZOLE
     Indication: Gastrointestinal disorder prophylaxis
  9. PREDNISONE [Concomitant]
     Active Substance: PREDNISONE
     Indication: Gastrointestinal disorder prophylaxis

REACTIONS (6)
  - Blood loss anaemia [Recovering/Resolving]
  - Colitis ulcerative [Recovering/Resolving]
  - Faecal calprotectin decreased [Unknown]
  - Weight fluctuation [Recovering/Resolving]
  - Weight decreased [Recovering/Resolving]
  - Intentional product use issue [Unknown]

NARRATIVE: CASE EVENT DATE: 20230101
